FAERS Safety Report 13063415 (Version 1)
Quarter: 2016Q4

REPORT INFORMATION
  Report Type: Other
  Country: GB (occurrence: IN)
  Receive Date: 20161227
  Receipt Date: 20161227
  Transmission Date: 20170207
  Serious: Yes (Other)
  Sender: FDA-Public Use
  Company Number: IN-CLARIS PHARMASERVICES-1061291

PATIENT
  Age: 85 Year
  Sex: Female

DRUGS (3)
  1. METRONIDAZOLE. [Suspect]
     Active Substance: METRONIDAZOLE
     Indication: VOMITING
     Route: 050
  2. FUROSEMIDE. [Concomitant]
     Active Substance: FUROSEMIDE
  3. VITAMIN SUPPLEMENT [Concomitant]
     Active Substance: VITAMINS

REACTIONS (1)
  - Dry mouth [Recovering/Resolving]
